FAERS Safety Report 4952117-0 (Version None)
Quarter: 2006Q1

REPORT INFORMATION
  Report Type: 
  Country: None (occurrence: None)
  Receive Date: 20060322
  Receipt Date: 20060322
  Transmission Date: 20060701
  Serious: Yes (Hospitalization, Other)
  Sender: FDA-Public Use
  Company Number: None

PATIENT
  Sex: Female
  Weight: 62.2 kg

DRUGS (2)
  1. GEMCITABINE [Suspect]
     Indication: BREAST CANCER
     Dosage: 1600 MG
     Dates: start: 20060309, end: 20060309
  2. PACLITAXEL [Suspect]
     Dosage: 200 MG
     Dates: start: 20060309, end: 20060309

REACTIONS (12)
  - ASTHENIA [None]
  - CATHETER SITE ERYTHEMA [None]
  - CHILLS [None]
  - DECREASED APPETITE [None]
  - DERMATITIS CONTACT [None]
  - DIZZINESS [None]
  - HYPOXIA [None]
  - MYALGIA [None]
  - NEUTROPHIL COUNT ABNORMAL [None]
  - PAIN [None]
  - PYREXIA [None]
  - WHITE BLOOD CELL COUNT ABNORMAL [None]
